FAERS Safety Report 9098760 (Version 2)
Quarter: 2013Q2

REPORT INFORMATION
  Report Type: Spontaneous
  Country: US (occurrence: US)
  Receive Date: 20130213
  Receipt Date: 20130401
  Transmission Date: 20140414
  Serious: No
  Sender: FDA-Public Use
  Company Number: US-009507513-1302USA005854

PATIENT
  Sex: Male

DRUGS (4)
  1. MIRALAX [Suspect]
     Indication: FOREIGN BODY
     Dosage: 4 DF, UNKNOWN
     Route: 048
  2. MIRALAX [Suspect]
     Indication: MEDICAL OBSERVATION
  3. CALCIUM (UNSPECIFIED) [Concomitant]
     Indication: PRODUCT USED FOR UNKNOWN INDICATION
     Dosage: UNK, UNKNOWN
  4. ASCORBIC ACID [Concomitant]
     Indication: PRODUCT USED FOR UNKNOWN INDICATION
     Dosage: UNK, UNKNOWN

REACTIONS (4)
  - Diarrhoea [Unknown]
  - Incorrect dose administered [Unknown]
  - Off label use [Unknown]
  - Wrong drug administered [Unknown]
